FAERS Safety Report 5768776-9 (Version None)
Quarter: 2008Q2

REPORT INFORMATION
  Report Type: 
  Country: None (occurrence: None)
  Receive Date: 20080612
  Receipt Date: 20080310
  Transmission Date: 20081010
  Serious: No
  Sender: FDA-Public Use
  Company Number: US-ABBOTT-08P-163-0442144-00

PATIENT
  Sex: Female
  Weight: 63.56 kg

DRUGS (4)
  1. HUMIRA [Suspect]
     Indication: COLITIS ULCERATIVE
     Dosage: STARTER DOSE
     Route: 058
     Dates: start: 20070801
  2. HUMIRA [Suspect]
  3. LOSARTAN POTASSIUM [Concomitant]
     Indication: HYPERTENSION
     Route: 048
  4. MESALAMINE [Concomitant]
     Indication: COLITIS ULCERATIVE
     Route: 048

REACTIONS (2)
  - DRUG DOSE OMISSION [None]
  - PROCEDURAL COMPLICATION [None]
